FAERS Safety Report 9357038 (Version 2)
Quarter: 2013Q4

REPORT INFORMATION
  Report Type: Spontaneous
  Country: GB (occurrence: GB)
  Receive Date: 20130620
  Receipt Date: 20131206
  Transmission Date: 20140711
  Serious: Yes (Death, Life-Threatening, Disabling, Other)
  Sender: FDA-Public Use
  Company Number: GB-RANBAXY-2013R1-70247

PATIENT
  Age: 51 Year
  Sex: Female
  Weight: 65.9 kg

DRUGS (1)
  1. FLUOXETINE [Suspect]
     Indication: DEPRESSION
     Dosage: UNK
     Route: 048
     Dates: start: 20121121, end: 20121122

REACTIONS (3)
  - Completed suicide [Fatal]
  - Condition aggravated [Not Recovered/Not Resolved]
  - Suicidal ideation [Not Recovered/Not Resolved]
